FAERS Safety Report 12568600 (Version 1)
Quarter: 2016Q3

REPORT INFORMATION
  Report Type: Report from Study
  Country: US (occurrence: US)
  Receive Date: 20160719
  Receipt Date: 20160719
  Transmission Date: 20161109
  Serious: Yes (Other)
  Sender: FDA-Public Use
  Company Number: US-ROCHE-1795974

PATIENT
  Sex: Male

DRUGS (1)
  1. CELLCEPT [Suspect]
     Active Substance: MYCOPHENOLATE MOFETIL\MYCOPHENOLATE MOFETIL HYDROCHLORIDE
     Indication: PRODUCT USED FOR UNKNOWN INDICATION
     Dosage: 2 PILLS
     Route: 065

REACTIONS (9)
  - Cerebrovascular accident [Unknown]
  - Dizziness [Unknown]
  - Diplopia [Recovering/Resolving]
  - Cough [Unknown]
  - Fatigue [Unknown]
  - Eye swelling [Unknown]
  - Lacrimation increased [Unknown]
  - Gait disturbance [Unknown]
  - Fall [Unknown]
